FAERS Safety Report 15146441 (Version 1)
Quarter: 2018Q3

REPORT INFORMATION
  Report Type: Report from Study
  Country: GB (occurrence: GB)
  Receive Date: 20180715
  Receipt Date: 20180715
  Transmission Date: 20181010
  Serious: Yes (Death, Life-Threatening, Hospitalization, Other)
  Sender: FDA-Public Use
  Company Number: PHHY2018GB038238

PATIENT
  Age: 49 Year
  Sex: Male

DRUGS (1)
  1. ERELZI [Suspect]
     Active Substance: ETANERCEPT-SZZS
     Indication: PSORIASIS
     Dosage: 50 MG, QW
     Route: 058
     Dates: start: 20180703

REACTIONS (8)
  - Depressed mood [Unknown]
  - Overdose [Fatal]
  - Poisoning [Unknown]
  - Incorrect dose administered [Unknown]
  - Insomnia [Unknown]
  - Anger [Unknown]
  - Suicide attempt [Fatal]
  - Frustration tolerance decreased [Unknown]

NARRATIVE: CASE EVENT DATE: 20180703
